FAERS Safety Report 7625258-7 (Version None)
Quarter: 2011Q3

REPORT INFORMATION
  Report Type: 
  Country: None (occurrence: None)
  Receive Date: 20110713
  Receipt Date: 20110628
  Transmission Date: 20111222
  Serious: Yes (Hospitalization, Other)
  Sender: FDA-Public Use
  Company Number: 2011MA008150

PATIENT
  Age: 40 Year
  Sex: Female

DRUGS (3)
  1. CARBAMAZEPINE [Suspect]
     Indication: BIPOLAR DISORDER
     Dosage: 600 MG; QD;
  2. FLUCONAZOLE [Suspect]
     Indication: CERVICITIS
     Dosage: 150 MG; QD;
  3. FLUCONAZOLE [Suspect]
     Indication: FUNGAL INFECTION
     Dosage: 150 MG; QD;

REACTIONS (10)
  - VOMITING [None]
  - DRUG INTERACTION [None]
  - DIZZINESS [None]
  - CERVICITIS [None]
  - FUNGAL INFECTION [None]
  - TOXICITY TO VARIOUS AGENTS [None]
  - DIPLOPIA [None]
  - NYSTAGMUS [None]
  - NAUSEA [None]
  - SACCADIC EYE MOVEMENT [None]
